FAERS Safety Report 10300194 (Version 1)
Quarter: 2014Q3

REPORT INFORMATION
  Report Type: Spontaneous
  Country: FR (occurrence: FR)
  Receive Date: 20140711
  Receipt Date: 20140711
  Transmission Date: 20150326
  Serious: Yes (Other)
  Sender: FDA-Public Use
  Company Number: FR-BAXTER-2014BAX037145

PATIENT
  Age: 61 Year
  Sex: Male

DRUGS (2)
  1. ADVATE [Suspect]
     Active Substance: ANTIHEMOPHILIC FACTOR, HUMAN RECOMBINANT
     Indication: INGUINAL HERNIA
     Dosage: GIVEN IN 6 DAYS
     Route: 042
     Dates: start: 2009, end: 2009
  2. ADVATE [Suspect]
     Active Substance: ANTIHEMOPHILIC FACTOR, HUMAN RECOMBINANT
     Indication: GASTROINTESTINAL HAEMORRHAGE
     Dosage: GIVEN IN 7 DAYS
     Route: 042
     Dates: start: 20131212, end: 20131218

REACTIONS (2)
  - Gastric cancer [Unknown]
  - Factor VIII inhibition [Not Recovered/Not Resolved]

NARRATIVE: CASE EVENT DATE: 201312
